FAERS Safety Report 21349192 (Version 1)
Quarter: 2022Q3

REPORT INFORMATION
  Report Type: Spontaneous
  Country: CA (occurrence: CA)
  Receive Date: 20220919
  Receipt Date: 20220919
  Transmission Date: 20221027
  Serious: Yes (Other)
  Sender: FDA-Public Use
  Company Number: CA-SAMSUNG BIOEPIS-SB-2022-07162

PATIENT
  Age: 58 Year
  Sex: Female

DRUGS (1)
  1. ADALIMUMAB [Suspect]
     Active Substance: ADALIMUMAB
     Indication: Rheumatoid arthritis
     Route: 058

REACTIONS (7)
  - Arthralgia [Unknown]
  - Hypersensitivity [Unknown]
  - Injection site rash [Unknown]
  - Pain [Unknown]
  - Rash [Unknown]
  - Road traffic accident [Unknown]
  - Drug ineffective [Unknown]
